FAERS Safety Report 5193346-3 (Version None)
Quarter: 2006Q4

REPORT INFORMATION
  Report Type: 
  Country: None (occurrence: None)
  Receive Date: 20061228
  Receipt Date: 20061004
  Transmission Date: 20070319
  Serious: No
  Sender: FDA-Public Use
  Company Number: US-GLAXOSMITHKLINE-A0622559A

PATIENT
  Age: 80 Year
  Sex: Male

DRUGS (8)
  1. AVODART [Suspect]
     Indication: BENIGN PROSTATIC HYPERPLASIA
     Dosage: .5MG PER DAY
     Route: 048
     Dates: start: 20060921
  2. PRAVACHOL [Concomitant]
  3. SYNTHROID [Concomitant]
  4. GLUCOTROL XL [Concomitant]
  5. COZAAR [Concomitant]
  6. VITAMIN [Concomitant]
  7. ASPIRIN [Concomitant]
  8. TAMOXIFEN CITRATE [Concomitant]

REACTIONS (2)
  - BLOOD GLUCOSE INCREASED [None]
  - SEXUAL DYSFUNCTION [None]
